FAERS Safety Report 8152647-7 (Version None)
Quarter: 2012Q1

REPORT INFORMATION
  Report Type: 
  Country: None (occurrence: None)
  Receive Date: 20120216
  Receipt Date: 20120216
  Transmission Date: 20120608
  Serious: No
  Sender: FDA-Public Use
  Company Number: None

PATIENT
  Sex: Male
  Weight: 52.6 kg

DRUGS (1)
  1. ENBREL [Suspect]
     Indication: POLYARTHRITIS
     Dosage: 80MG QW SQ
     Route: 058
     Dates: start: 20110920

REACTIONS (2)
  - CHEST PAIN [None]
  - MUSCLE SPASMS [None]
